FAERS Safety Report 19215347 (Version 1)
Quarter: 2021Q2

REPORT INFORMATION
  Report Type: Spontaneous
  Country: IT (occurrence: IT)
  Receive Date: 20210504
  Receipt Date: 20210504
  Transmission Date: 20210717
  Serious: Yes (Other)
  Sender: FDA-Public Use
  Company Number: IT-AUROBINDO-AUR-APL-2021-018072

PATIENT
  Age: 63 Year
  Sex: Female

DRUGS (1)
  1. CEFIXIME FILM COATED TABLET [Suspect]
     Active Substance: CEFIXIME
     Indication: DIVERTICULITIS
     Dosage: 400 MILLIGRAM
     Route: 048
     Dates: start: 20210419, end: 20210419

REACTIONS (2)
  - Rash pruritic [Recovering/Resolving]
  - Syncope [Recovering/Resolving]

NARRATIVE: CASE EVENT DATE: 20210419
